FAERS Safety Report 8850928 (Version 1)
Quarter: 2012Q4

REPORT INFORMATION
  Report Type: 
  Country: DE (occurrence: DE)
  Receive Date: 20121019
  Receipt Date: 20121019
  Transmission Date: 20130627
  Serious: Yes (Death, Hospitalization, Other)
  Sender: FDA-Public Use
  Company Number: DE-BAYER-2012-107583

PATIENT
  Age: 77 Year
  Sex: Male

DRUGS (3)
  1. CIPROFLOXACIN [Suspect]
     Indication: EVIDENCE BASED TREATMENT
     Dosage: UNK
  2. CIPROFLOXACIN [Suspect]
     Indication: EVIDENCE BASED TREATMENT
  3. ALL OTHER THERAPEUTIC PRODUCTS [Suspect]
     Indication: GASTRIC VARICES HAEMORRHAGE

REACTIONS (8)
  - Escherichia test positive [None]
  - Pyrexia [None]
  - Injection site necrosis [None]
  - Escherichia test positive [None]
  - Abdominal abscess [None]
  - Enterococcal infection [None]
  - Sepsis [Fatal]
  - Multi-organ failure [Fatal]
